FAERS Safety Report 7917015-9 (Version None)
Quarter: 2011Q4

REPORT INFORMATION
  Report Type: 
  Country: None (occurrence: None)
  Receive Date: 20111116
  Receipt Date: 20111109
  Transmission Date: 20120403
  Serious: Yes (Hospitalization)
  Sender: FDA-Public Use
  Company Number: US-CELGENEUS-163-21880-11061471

PATIENT
  Sex: Female

DRUGS (14)
  1. RISPERIDONE [Concomitant]
     Dosage: 1/2
     Route: 048
     Dates: start: 20110312
  2. CALCIUM [Concomitant]
     Dosage: 2
     Route: 048
     Dates: start: 20100810
  3. KLOR-CON [Concomitant]
     Dosage: 20 MILLIEQUIVALENTS
     Route: 048
     Dates: start: 20101130
  4. BUPROPION HCL [Concomitant]
     Dosage: 150 MILLIGRAM
     Route: 048
     Dates: start: 20110106
  5. CENTRUM SILVER [Concomitant]
     Dosage: 1
     Route: 048
     Dates: start: 20090630
  6. PRED FORTE [Concomitant]
     Dosage: 2 DROPS
     Route: 047
     Dates: start: 20100729
  7. VITAMIN D [Concomitant]
     Dosage: 1000 UNIT
     Route: 048
     Dates: start: 20090630
  8. ASPIRIN [Concomitant]
     Dosage: 1
     Route: 048
     Dates: start: 20090804
  9. TRAZODONE HCL [Concomitant]
     Dosage: 1
     Route: 048
     Dates: start: 20110106
  10. REVLIMID [Suspect]
     Indication: MULTIPLE MYELOMA
     Dosage: 25 MILLIGRAM
     Route: 048
     Dates: start: 20101026, end: 20110601
  11. FISH OIL [Concomitant]
     Dosage: 2
     Route: 048
     Dates: start: 20091016
  12. DEXAMETHASONE [Concomitant]
     Dosage: 10
     Route: 048
     Dates: start: 20100902
  13. CALCIUM CARBONATE [Concomitant]
     Dosage: 5
     Route: 048
     Dates: start: 20100212
  14. TROPICAMIDE [Concomitant]
     Dosage: EACH EYE
     Route: 047
     Dates: start: 20100729

REACTIONS (1)
  - SCHIZOAFFECTIVE DISORDER [None]
